FAERS Safety Report 14767786 (Version 1)
Quarter: 2018Q2

REPORT INFORMATION
  Report Type: Spontaneous
  Country: GB (occurrence: GB)
  Receive Date: 20180417
  Receipt Date: 20180417
  Transmission Date: 20180711
  Serious: Yes (Other)
  Sender: FDA-Public Use
  Company Number: GB-SUN PHARMACEUTICAL INDUSTRIES LTD-2018RR-170064

PATIENT
  Age: 67 Year
  Sex: Male

DRUGS (13)
  1. BACLOFEN. [Suspect]
     Active Substance: BACLOFEN
     Indication: SUNCT SYNDROME
     Route: 065
  2. LIDOCAINE. [Suspect]
     Active Substance: LIDOCAINE
     Indication: SUNCT SYNDROME
     Dosage: 1-4 MG/MIN FOR 7 DAYS
     Route: 042
  3. TOPIRAMATE. [Suspect]
     Active Substance: TOPIRAMATE
     Indication: SUNCT SYNDROME
     Dosage: 400 MG, UNK
     Route: 065
  4. LIDOCAINE. [Suspect]
     Active Substance: LIDOCAINE
     Indication: SUNCT SYNDROME
     Dosage: 5% PATCH FOR 12 HOURS DAILY
     Route: 062
  5. PHENYTOIN. [Suspect]
     Active Substance: PHENYTOIN
     Indication: SUNCT SYNDROME
     Dosage: 250 MG, UNK
     Route: 005
  6. SUMATRIPTAN. [Suspect]
     Active Substance: SUMATRIPTAN
     Indication: SUNCT SYNDROME
     Dosage: 6 MG, AS NEEDED
     Route: 065
  7. CARBAMAZEPINE. [Suspect]
     Active Substance: CARBAMAZEPINE
     Indication: SUNCT SYNDROME
     Dosage: 800 MG, UNK
     Route: 065
  8. MELATONIN [Suspect]
     Active Substance: MELATONIN
     Indication: SUNCT SYNDROME
     Dosage: 9 MG, UNK
     Route: 065
  9. OXCARBAZEPINE. [Suspect]
     Active Substance: OXCARBAZEPINE
     Indication: SUNCT SYNDROME
     Route: 065
  10. GABAPENTIN. [Suspect]
     Active Substance: GABAPENTIN
     Indication: SUNCT SYNDROME
     Route: 065
  11. INDOMETHACIN. [Suspect]
     Active Substance: INDOMETHACIN
     Indication: SUNCT SYNDROME
     Dosage: 150 MG, UNK
     Route: 065
  12. LITHIUM. [Suspect]
     Active Substance: LITHIUM
     Indication: SUNCT SYNDROME
     Route: 065
  13. LAMOTRIGINE. [Suspect]
     Active Substance: LAMOTRIGINE
     Indication: SUNCT SYNDROME
     Dosage: 700 MG, UNK
     Route: 065

REACTIONS (8)
  - Drug ineffective [Unknown]
  - Balance disorder [Unknown]
  - Memory impairment [Unknown]
  - Diplopia [Unknown]
  - Drug effect incomplete [Unknown]
  - Dizziness [Unknown]
  - Tremor [Unknown]
  - Somnolence [Unknown]
